FAERS Safety Report 8574885-1 (Version None)
Quarter: 2012Q3

REPORT INFORMATION
  Report Type: 
  Country: None (occurrence: None)
  Receive Date: 20120807
  Receipt Date: 20120727
  Transmission Date: 20120928
  Serious: Yes (Hospitalization)
  Sender: FDA-Public Use
  Company Number: JP-009507513-2012SP020577

PATIENT

DRUGS (26)
  1. PEGINTERFERON ALFA-2B [Suspect]
     Indication: HEPATITIS C
     Dosage: 60 ?G, QW
     Route: 058
     Dates: start: 20120118, end: 20120329
  2. LANSOPRAZOLE [Concomitant]
     Indication: OESOPHAGITIS
     Dosage: FORMULATION POR
     Route: 048
  3. MAGMITT [Concomitant]
     Indication: PROPHYLAXIS
     Dosage: FORMULATION POR
     Route: 048
  4. TALION (BEPOTASTINE BESYLATE) [Concomitant]
     Dosage: UNK UNK, UNKNOWN
     Route: 048
  5. REBETOL [Suspect]
     Indication: HEPATITIS C
     Dosage: 200 MG, BID
     Route: 048
     Dates: start: 20120118, end: 20120201
  6. REBETOL [Suspect]
     Dosage: 200 MG, QD
     Route: 048
     Dates: start: 20120202, end: 20120322
  7. ACTONEL [Concomitant]
     Dosage: 17.5 MG, ON FRIDAYS
     Route: 048
  8. DEXTROSE (+) ELECTROLYTES (UNSPECIFIED) (+) SODIUM LACTATE [Concomitant]
     Indication: DEHYDRATION
     Dosage: ROUTE IV UNSPECIFIED. UPDATE (05JUN2012): IT IS SINGLE USE DURING 500 ML/DAY.
     Route: 042
     Dates: start: 20120301
  9. ANTEBATE [Concomitant]
     Indication: PRODUCT USED FOR UNKNOWN INDICATION
     Dosage: DAILY DOSE UNKNOWN
     Route: 061
  10. REBETOL [Suspect]
     Route: 048
     Dates: start: 20120502
  11. ANTEBATE [Concomitant]
     Route: 061
  12. KETOPROFEN [Concomitant]
     Route: 061
  13. TALION (BEPOTASTINE BESYLATE) [Concomitant]
     Indication: PRODUCT USED FOR UNKNOWN INDICATION
     Dosage: 20 MG, QD
     Route: 048
     Dates: start: 20120124
  14. PREDNISOLONE [Concomitant]
     Indication: PRODUCT USED FOR UNKNOWN INDICATION
     Dosage: UNK UNK, UNKNOWN
     Route: 065
     Dates: start: 20120120, end: 20120217
  15. PEG-INTRON [Suspect]
     Indication: HEPATITIS C
     Dosage: 60 MCG/WEEK
     Route: 058
     Dates: start: 20120118, end: 20120329
  16. PEG-INTRON [Suspect]
     Dosage: 1.29MCG/KG/WEEK
     Route: 058
     Dates: start: 20120502
  17. KETOPROFEN [Concomitant]
     Indication: PRODUCT USED FOR UNKNOWN INDICATION
     Dosage: FORMULATION TAP, DAILY DOSE UNKNOWN
     Route: 061
  18. ANTIVIRAL (UNSPECIFIED) [Suspect]
     Indication: HEPATITIS C
     Dosage: 750 MG, BID
     Route: 048
     Dates: start: 20120118, end: 20120315
  19. TELAVIC [Suspect]
     Indication: HEPATITIS C
     Dosage: 750 BID
     Route: 048
     Dates: start: 20120118, end: 20120315
  20. LANSOPRAZOLE [Concomitant]
     Dosage: 15 MG, ONCE
     Route: 048
  21. MECOBALAMIN [Concomitant]
     Indication: PRODUCT USED FOR UNKNOWN INDICATION
     Dosage: 1500 ?G, QD
     Route: 048
  22. MAGMITT [Concomitant]
     Dosage: 500 MG, ONCE
     Route: 048
  23. ALLEGRA [Concomitant]
     Indication: PRODUCT USED FOR UNKNOWN INDICATION
     Dosage: 120 MG, QD
     Route: 048
     Dates: start: 20120121, end: 20120124
  24. ACTONEL [Concomitant]
     Indication: OSTEOPOROSIS
     Dosage: FORMULATION POR, 17.5 MG EVERY FRIDAY ONLY
     Route: 048
  25. TALION (BEPOTASTINE BESYLATE) [Concomitant]
     Dosage: 20
     Route: 048
  26. POTASSIUM CHLORIDE [Concomitant]
     Indication: DEHYDRATION
     Dosage: 500 ML/DAY, AS NEEDED
     Route: 042
     Dates: start: 20120301

REACTIONS (2)
  - ANAEMIA [None]
  - HAEMOGLOBIN DECREASED [None]
